FAERS Safety Report 6141757-1 (Version None)
Quarter: 2009Q2

REPORT INFORMATION
  Report Type: 
  Country: None (occurrence: None)
  Receive Date: 20090402
  Receipt Date: 20080918
  Transmission Date: 20091009
  Serious: No
  Sender: FDA-Public Use
  Company Number: US-ABBOTT-08P-163-0476880-00

PATIENT
  Sex: Female
  Weight: 51.302 kg

DRUGS (2)
  1. LUPRON DEPOT [Suspect]
     Indication: ENDOMETRIOSIS
     Route: 050
     Dates: start: 20071101, end: 20080601
  2. LUPRON DEPOT [Suspect]
     Route: 050
     Dates: start: 20080601, end: 20080601

REACTIONS (1)
  - BLOOD CREATINE INCREASED [None]
